FAERS Safety Report 21528901 (Version 4)
Quarter: 2023Q2

REPORT INFORMATION
  Report Type: Spontaneous
  Country: US (occurrence: US)
  Receive Date: 20221031
  Receipt Date: 20230411
  Transmission Date: 20230721
  Serious: Yes (Other)
  Sender: FDA-Public Use
  Company Number: US-BIOVITRUM-2022US12426

PATIENT
  Age: 0 Year
  Sex: Female

DRUGS (1)
  1. SYNAGIS [Suspect]
     Active Substance: PALIVIZUMAB
     Indication: Premature baby
     Dosage: 55.2(DOSE UNITS NOT REPORTED)?1 EVERY 1 MONTH
     Route: 030
     Dates: start: 20220706

REACTIONS (11)
  - Bronchiolitis [Unknown]
  - Hormone level abnormal [Unknown]
  - Pyrexia [Unknown]
  - Influenza [Unknown]
  - Hyperhidrosis [Unknown]
  - Acne [Unknown]
  - Weight increased [Unknown]
  - Decreased appetite [Unknown]
  - Hypersensitivity [Unknown]
  - Eye pruritus [Unknown]
  - Nasal discomfort [Unknown]

NARRATIVE: CASE EVENT DATE: 20230101
